FAERS Safety Report 16814078 (Version 1)
Quarter: 2019Q3

REPORT INFORMATION
  Report Type: Spontaneous
  Country: FR (occurrence: FR)
  Receive Date: 20190917
  Receipt Date: 20190917
  Transmission Date: 20191005
  Serious: Yes (Life-Threatening, Hospitalization)
  Sender: FDA-Public Use
  Company Number: FR-SUN PHARMACEUTICAL INDUSTRIES LTD-2019RR-220975

PATIENT
  Age: 32 Year
  Sex: Female
  Weight: 69 kg

DRUGS (11)
  1. TROPATEPINE (CHLORHYDRATE DE) [Suspect]
     Active Substance: TROPATEPINE HYDROCHLORIDE
     Indication: PARKINSONISM
     Dosage: 20 MILLIGRAM, DAILY
     Route: 048
  2. VALACICLOVIR [Suspect]
     Active Substance: VALACYCLOVIR HYDROCHLORIDE
     Indication: OPPORTUNISTIC INFECTION PROPHYLAXIS
     Dosage: 1000 MILLIGRAM, DAILY
     Route: 048
     Dates: start: 201904
  3. LAMOTRIGINE. [Suspect]
     Active Substance: LAMOTRIGINE
     Indication: PRODUCT USED FOR UNKNOWN INDICATION
     Dosage: 100 MILLIGRAM, DAILY
     Route: 048
  4. ALLOPURINOL. [Suspect]
     Active Substance: ALLOPURINOL
     Indication: PROPHYLAXIS
     Dosage: 300 MILLIGRAM, UNK
     Route: 048
     Dates: start: 20190729, end: 20190806
  5. OXYCODONE [Suspect]
     Active Substance: OXYCODONE
     Indication: GAIT DISTURBANCE
     Dosage: 40 MILLIGRAM, UNK
     Route: 048
     Dates: start: 20190805, end: 20190806
  6. HYDREA [Concomitant]
     Active Substance: HYDROXYUREA
     Indication: LEUKAEMIA
     Dosage: 1000 MILLIGRAM, DAILY
     Route: 048
     Dates: start: 20190729, end: 20190802
  7. MACROGOL 4000 [Suspect]
     Active Substance: POLYETHYLENE GLYCOL 4000
     Indication: CONSTIPATION
     Dosage: 20 GRAM, DAILY
     Route: 048
     Dates: start: 20190729, end: 20190806
  8. NOMEGESTROL [Suspect]
     Active Substance: NOMEGESTROL
     Indication: CONTRACEPTION
     Dosage: 5 MILLIGRAM, DAILY
     Route: 048
  9. PAROXETINE. [Concomitant]
     Active Substance: PAROXETINE
     Indication: DEPRESSION
     Dosage: 20 MILLIGRAM, DAILY
     Route: 048
     Dates: end: 20190802
  10. GILTERITINIB [Suspect]
     Active Substance: GILTERITINIB
     Indication: ACUTE MYELOID LEUKAEMIA
     Dosage: 120 MILLIGRAM, DAILY
     Route: 048
     Dates: start: 20190802, end: 20190805
  11. POSACONAZOLE [Concomitant]
     Active Substance: POSACONAZOLE
     Indication: INFECTION
     Dosage: 300 MILLIGRAM, DAILY
     Route: 048
     Dates: start: 20190729, end: 20190802

REACTIONS (2)
  - Hepatitis [Recovered/Resolved]
  - Encephalopathy [Recovered/Resolved]

NARRATIVE: CASE EVENT DATE: 20190806
